FAERS Safety Report 8555990-2 (Version None)
Quarter: 2012Q3

REPORT INFORMATION
  Report Type: 
  Country: None (occurrence: None)
  Receive Date: 20120801
  Receipt Date: 20120725
  Transmission Date: 20120928
  Serious: Yes (Hospitalization, Disabling)
  Sender: FDA-Public Use
  Company Number: AU-009507513-1206USA01264

PATIENT

DRUGS (1)
  1. FOSAMAX PLUS D [Suspect]
     Indication: OSTEOPOROSIS
     Dosage: 1 UNK, UNK
     Route: 048
     Dates: end: 20120402

REACTIONS (4)
  - TRAUMATIC FRACTURE [None]
  - LIMB DEFORMITY [None]
  - FEMUR FRACTURE [None]
  - FALL [None]
